FAERS Safety Report 4787548-5 (Version None)
Quarter: 2005Q4

REPORT INFORMATION
  Report Type: 
  Country: None (occurrence: None)
  Receive Date: 20051003
  Receipt Date: 20050920
  Transmission Date: 20060501
  Serious: Yes (Other)
  Sender: FDA-Public Use
  Company Number: 2005131102

PATIENT
  Age: 53 Year
  Sex: Male
  Weight: 122 kg

DRUGS (5)
  1. ATORVASTATIN [Suspect]
     Indication: HYPERCHOLESTEROLAEMIA
     Dosage: 10 MG (10 MG, 1 IN 1 D), ORAL
     Route: 048
     Dates: start: 20030515
  2. ATENOLOL [Concomitant]
  3. BENDROFLUMETHIAZIDE                 (BENDROFLUMETHIAZIDE) [Concomitant]
     Route: 048
  4. CO-PROXAMOL [Concomitant]
  5. NAPROXEN [Concomitant]
     Route: 048

REACTIONS (4)
  - ALANINE AMINOTRANSFERASE INCREASED [None]
  - BLOOD CREATINE PHOSPHOKINASE INCREASED [None]
  - MUSCLE FATIGUE [None]
  - MYALGIA [None]
